FAERS Safety Report 10144392 (Version 3)
Quarter: 2014Q2

REPORT INFORMATION
  Report Type: Spontaneous
  Country: JP (occurrence: JP)
  Receive Date: 20140430
  Receipt Date: 20140604
  Transmission Date: 20141212
  Serious: Yes (Other)
  Sender: FDA-Public Use
  Company Number: JP-ABBVIE-14P-087-1231965-00

PATIENT
  Age: 92 Year
  Sex: Female

DRUGS (22)
  1. KLARICID [Suspect]
     Indication: BRONCHITIS CHRONIC
     Dosage: DAILY DOSE: 200 MILLIGRAM; IN THE MORNING
     Route: 048
     Dates: start: 20140415, end: 20140422
  2. KLARICID [Suspect]
     Indication: EMPHYSEMA
  3. MUCOSOLVAN [Suspect]
     Indication: BRONCHITIS CHRONIC
     Route: 048
     Dates: start: 20140415, end: 20140422
  4. MUCOSOLVAN [Suspect]
     Indication: EMPHYSEMA
  5. BROTIZOLAM [Concomitant]
     Indication: INSOMNIA
     Route: 048
     Dates: start: 20130702
  6. FUROSEMIDE [Concomitant]
     Indication: CARDIAC FAILURE CHRONIC
     Route: 048
     Dates: start: 20130731
  7. ETIZOLAM [Concomitant]
     Indication: INSOMNIA
     Route: 048
     Dates: start: 20130731
  8. BIFIDOBACTERIUM ANIMALIS [Concomitant]
     Indication: DIARRHOEA
     Route: 048
     Dates: start: 20130702
  9. OLOPATADINE HYDROCHLORIDE [Concomitant]
     Indication: DERMATITIS
     Route: 048
     Dates: start: 20130628
  10. BETHANECHOL CHLORIDE [Concomitant]
     Indication: NEUROGENIC BLADDER
     Route: 048
     Dates: start: 20130702
  11. URAPIDIL [Concomitant]
     Indication: NEUROGENIC BLADDER
     Route: 048
     Dates: start: 20130702
  12. RACOL [Concomitant]
     Indication: DECREASED APPETITE
     Route: 048
     Dates: start: 20130702
  13. SENNA [Concomitant]
     Indication: CONSTIPATION
     Route: 048
     Dates: start: 20130731
  14. TIAPRIDE HYDROCHLORIDE [Concomitant]
     Indication: DELIRIUM
     Route: 048
     Dates: start: 20131008
  15. RABEPRAZOLE SODIUM [Concomitant]
     Indication: GASTROOESOPHAGEAL REFLUX DISEASE
     Route: 048
     Dates: start: 20130702
  16. GLYCOPYRRONIUM BROMIDE [Concomitant]
     Indication: EMPHYSEMA
     Route: 055
     Dates: start: 20130702
  17. MOMETASONE FUROATE [Concomitant]
     Indication: PRODUCT USED FOR UNKNOWN INDICATION
  18. BETAMETHASONE [Concomitant]
     Indication: PRODUCT USED FOR UNKNOWN INDICATION
     Dosage: PRN (IF NECESSARY)
     Route: 048
  19. LOXOPROFEN SODIUM [Concomitant]
     Indication: BACK PAIN
     Route: 062
     Dates: start: 20131001
  20. HEPARINOID [Concomitant]
     Indication: HYPERKERATOSIS
     Dosage: PRN (IF NECESSARY)
     Route: 061
     Dates: start: 20130628
  21. LEVOCABASTINE HYDROCHLORIDE [Concomitant]
     Indication: CONJUNCTIVITIS ALLERGIC
     Dosage: PRN (IF NECESSARY)
     Route: 047
     Dates: start: 20130702
  22. PIRENOXINE [Concomitant]
     Indication: CATARACT
     Dosage: PRN (IF NECESSARY)
     Route: 047
     Dates: start: 20130702

REACTIONS (1)
  - Hypoacusis [Recovered/Resolved]
